FAERS Safety Report 20061082 (Version 5)
Quarter: 2021Q4

REPORT INFORMATION
  Report Type: Spontaneous
  Country: US (occurrence: US)
  Receive Date: 20211112
  Receipt Date: 20211227
  Transmission Date: 20220304
  Serious: Yes (Hospitalization)
  Sender: FDA-Public Use
  Company Number: US-SANOFI-00841189

PATIENT
  Sex: Male

DRUGS (1)
  1. TOUJEO MAX [Suspect]
     Active Substance: INSULIN GLARGINE
     Indication: Type 2 diabetes mellitus
     Dosage: 50 IU, Q12H
     Route: 065

REACTIONS (6)
  - Hospitalisation [Unknown]
  - Blood glucose abnormal [Recovered/Resolved]
  - Drug dose omission by device [Recovered/Resolved]
  - Device operational issue [Recovered/Resolved]
  - Coronary artery bypass [Not Recovered/Not Resolved]
  - Inappropriate schedule of product administration [Unknown]
